FAERS Safety Report 23582876 (Version 3)
Quarter: 2024Q1

REPORT INFORMATION
  Report Type: Other
  Country: CA (occurrence: None)
  Receive Date: 20240301
  Receipt Date: 20240319
  Transmission Date: 20240410
  Serious: No
  Sender: FDA-Public Use
  Company Number: CA-ROCHE-3411131

PATIENT
  Age: 35 Year
  Sex: Female

DRUGS (6)
  1. OCREVUS [Suspect]
     Active Substance: OCRELIZUMAB
     Indication: Relapsing-remitting multiple sclerosis
     Dosage: 300 MG AT DAY 0 AND 14, THEN 600 MG EVERY 6 MONTH
     Route: 042
     Dates: start: 20230809
  2. CALCIUM ACETYLSALICYLATE [Concomitant]
  3. MAGNESIUM CITRATE [Concomitant]
     Active Substance: MAGNESIUM CITRATE
  4. MAGNESIUM;VITAMIN D3 [Concomitant]
  5. HERBALS [Concomitant]
     Active Substance: HERBALS
  6. ASTAXANTHIN [Concomitant]
     Active Substance: ASTAXANTHIN

REACTIONS (7)
  - Mental impairment [Unknown]
  - Upper-airway cough syndrome [Not Recovered/Not Resolved]
  - Nasopharyngitis [Recovering/Resolving]
  - Influenza [Recovering/Resolving]
  - Hordeolum [Recovered/Resolved]
  - Eye infection [Recovered/Resolved]
  - Lymphadenopathy [Recovered/Resolved]

NARRATIVE: CASE EVENT DATE: 20240213
